FAERS Safety Report 7067687-9 (Version None)
Quarter: 2010Q4

REPORT INFORMATION
  Report Type: 
  Country: None (occurrence: None)
  Receive Date: 20101028
  Receipt Date: 20101015
  Transmission Date: 20110411
  Serious: Yes (Hospitalization)
  Sender: FDA-Public Use
  Company Number: PHFR2010GB02208

PATIENT
  Sex: Male

DRUGS (4)
  1. CLOZARIL [Suspect]
     Indication: SCHIZOPHRENIA
     Dosage: 350 MG, BID
     Route: 048
     Dates: start: 20001228
  2. LACTULOSE [Concomitant]
     Dosage: 20 ML, UNK
     Dates: start: 20101012
  3. DEPAKOTE [Concomitant]
     Dosage: 500 MG, BID
     Dates: start: 20100908
  4. ZOPICLONE [Concomitant]
     Dosage: 7.5 MG, QD
     Dates: start: 20100924

REACTIONS (2)
  - MENTAL IMPAIRMENT [None]
  - TREATMENT NONCOMPLIANCE [None]
